FAERS Safety Report 9235143 (Version 1)
Quarter: 2013Q2

REPORT INFORMATION
  Report Type: Spontaneous
  Country: US (occurrence: US)
  Receive Date: 20130416
  Receipt Date: 20130416
  Transmission Date: 20140414
  Serious: No
  Sender: FDA-Public Use
  Company Number: US-009507513-1302USA013482

PATIENT
  Sex: Male

DRUGS (2)
  1. MIRALAX [Suspect]
     Indication: BOWEL MOVEMENT IRREGULARITY
     Dosage: UNK
  2. METAMUCIL [Suspect]
     Indication: BOWEL MOVEMENT IRREGULARITY

REACTIONS (1)
  - Faeces hard [Not Recovered/Not Resolved]
